FAERS Safety Report 10722619 (Version 7)
Quarter: 2015Q2

REPORT INFORMATION
  Report Type: Report from Study
  Country: FR (occurrence: FR)
  Receive Date: 20150120
  Receipt Date: 20150413
  Transmission Date: 20150821
  Serious: Yes (Hospitalization)
  Sender: FDA-Public Use
  Company Number: FR-ROCHE-1523073

PATIENT
  Age: 42 Year
  Sex: Male
  Weight: 79 kg

DRUGS (15)
  1. VISMODEGIB [Suspect]
     Active Substance: VISMODEGIB
     Indication: BASAL CELL CARCINOMA
     Dosage: THE OPEN LABEL PHASE WAS CONCLUDED ON AN UNSPECIFIED DATE.?DATE OF LAST DOSE PRIOR TO SAE: 15/JAN/20
     Route: 048
     Dates: start: 20140408
  2. SMECTA [Concomitant]
     Active Substance: MONTMORILLONITE
     Route: 065
     Dates: start: 20140918, end: 20140919
  3. BLINDED VISMODEGIB [Suspect]
     Active Substance: VISMODEGIB
     Indication: BASAL CELL CARCINOMA
     Dosage: LAST DOSE PRIOR TO HOSPITALISATION FOR ASTHENIA ON 15/JAN/2015.
     Route: 048
  4. HALDOL [Concomitant]
     Active Substance: HALOPERIDOL
     Route: 065
     Dates: start: 2007
  5. SPASFON (FRANCE) [Concomitant]
     Active Substance: PHLOROGLUCINOL
     Route: 065
     Dates: start: 20140919, end: 20140920
  6. ACUPAN [Concomitant]
     Active Substance: NEFOPAM HYDROCHLORIDE
     Route: 065
     Dates: start: 20150119
  7. TOPALGIC (FRANCE) [Concomitant]
     Active Substance: TRAMADOL
     Dosage: REPORTED AS 100LP. DOSE: 2 PER DAY AS NEEDED
     Route: 065
     Dates: start: 20140528
  8. IMODIUM [Concomitant]
     Active Substance: LOPERAMIDE HYDROCHLORIDE
     Route: 065
     Dates: start: 20140918, end: 20140919
  9. SPASFON (FRANCE) [Concomitant]
     Active Substance: PHLOROGLUCINOL
     Route: 065
     Dates: start: 20141102, end: 20141112
  10. SMECTA [Concomitant]
     Active Substance: MONTMORILLONITE
     Route: 065
     Dates: start: 20141102, end: 20141112
  11. IMODIUM [Concomitant]
     Active Substance: LOPERAMIDE HYDROCHLORIDE
     Route: 065
     Dates: start: 20141102, end: 20141112
  12. LEPTICUR [Concomitant]
     Active Substance: TROPATEPINE HYDROCHLORIDE
     Route: 065
     Dates: start: 2007
  13. LYSANXIA [Concomitant]
     Active Substance: PRAZEPAM
     Route: 065
     Dates: start: 2007
  14. DOLIPRANE [Concomitant]
     Active Substance: ACETAMINOPHEN
     Route: 065
     Dates: start: 20140528
  15. KALEORID [Concomitant]
     Active Substance: POTASSIUM CHLORIDE
     Route: 065
     Dates: start: 20141013

REACTIONS (1)
  - Asthenia [Recovered/Resolved]

NARRATIVE: CASE EVENT DATE: 20150127
